FAERS Safety Report 8851627 (Version 2)
Quarter: 2012Q4

REPORT INFORMATION
  Report Type: 
  Country: US (occurrence: US)
  Receive Date: 20121022
  Receipt Date: 20121128
  Transmission Date: 20130627
  Serious: Yes (Other)
  Sender: FDA-Public Use
  Company Number: US-AMGEN-USASP2012065803

PATIENT
  Age: 67 Year
  Sex: Female
  Weight: 60.77 kg

DRUGS (4)
  1. PROCRIT [Suspect]
     Indication: HAEMOLYTIC ANAEMIA
     Dosage: 40000 unit, qwk
     Route: 058
     Dates: start: 2005
  2. RIBAVIRIN [Concomitant]
     Indication: HEPATITIS C
     Dosage: 600 mg, UNK
     Route: 048
     Dates: start: 2005, end: 201210
  3. INTERFERON [Concomitant]
     Indication: HEPATITIS C
     Dosage: UNK
     Dates: start: 2005
  4. INCIVEK [Concomitant]
     Indication: HEPATITIS C
     Dosage: UNK
     Dates: start: 2005

REACTIONS (8)
  - Confusional state [Not Recovered/Not Resolved]
  - Blood count abnormal [Not Recovered/Not Resolved]
  - Oxygen consumption decreased [Not Recovered/Not Resolved]
  - Malaise [Not Recovered/Not Resolved]
  - Fatigue [Not Recovered/Not Resolved]
  - Nausea [Not Recovered/Not Resolved]
  - Stress [Unknown]
  - Drug ineffective [Not Recovered/Not Resolved]
